FAERS Safety Report 6717405-6 (Version None)
Quarter: 2010Q2

REPORT INFORMATION
  Report Type: 
  Country: None (occurrence: None)
  Receive Date: 20100510
  Receipt Date: 20100428
  Transmission Date: 20101027
  Serious: Yes (Death)
  Sender: FDA-Public Use
  Company Number: US-SANOFI-AVENTIS-2010SA024838

PATIENT
  Age: 79 Year
  Sex: Female

DRUGS (3)
  1. LANTUS [Suspect]
     Indication: TYPE 1 DIABETES MELLITUS
     Route: 058
     Dates: end: 20100401
  2. OPTICLICK [Suspect]
     Indication: TYPE 1 DIABETES MELLITUS
     Dates: end: 20100401
  3. NOVOLOG [Concomitant]
     Dates: end: 20100401

REACTIONS (2)
  - MALAISE [None]
  - MYOCARDIAL INFARCTION [None]
